FAERS Safety Report 7637412-9 (Version None)
Quarter: 2011Q3

REPORT INFORMATION
  Report Type: 
  Country: None (occurrence: None)
  Receive Date: 20110726
  Receipt Date: 20110722
  Transmission Date: 20111222
  Serious: No
  Sender: FDA-Public Use
  Company Number: US-PFIZER INC-2011167377

PATIENT
  Sex: Female
  Weight: 54.422 kg

DRUGS (1)
  1. ADVIL [Suspect]
     Indication: SINUS HEADACHE
     Dosage: UNK, 1X/DAY
     Route: 048
     Dates: start: 20110721, end: 20110722

REACTIONS (1)
  - RASH [None]
